FAERS Safety Report 9541835 (Version 2)
Quarter: 2013Q3

REPORT INFORMATION
  Report Type: Spontaneous
  Country: JP (occurrence: JP)
  Receive Date: 20130923
  Receipt Date: 20130923
  Transmission Date: 20140515
  Serious: Yes (Other)
  Sender: FDA-Public Use
  Company Number: PHHY2013JP075419

PATIENT
  Age: 46 Year
  Sex: Female

DRUGS (3)
  1. LAMISIL [Suspect]
     Indication: TINEA PEDIS
     Dosage: 125 MG, DAILY
     Route: 048
     Dates: start: 20121121, end: 20130728
  2. IRBETAN [Concomitant]
     Dosage: 100 MG, UNK
     Route: 048
     Dates: start: 20120907
  3. BASEN//VOGLIBOSE [Concomitant]
     Dosage: 0.9 MG, UNK
     Route: 048
     Dates: start: 20130115

REACTIONS (1)
  - Hypophosphatasia [Recovering/Resolving]
